FAERS Safety Report 14539221 (Version 3)
Quarter: 2018Q4

REPORT INFORMATION
  Report Type: Report from Study
  Country: IT (occurrence: IT)
  Receive Date: 20180216
  Receipt Date: 20181227
  Transmission Date: 20190204
  Serious: Yes (Other)
  Sender: FDA-Public Use
  Company Number: IT-ACCORD-063647

PATIENT
  Age: 57 Year
  Sex: Male
  Weight: 84 kg

DRUGS (2)
  1. ABRAXANE [Suspect]
     Active Substance: PACLITAXEL
     Indication: PANCREATIC NEOPLASM
     Dosage: STRENGTH: 5 MG/ML POWDER FOR SUSPENSION FOR INFUSION
     Route: 042
     Dates: start: 20171012, end: 20171207
  2. GEMCITABINE ACCORD [Suspect]
     Active Substance: GEMCITABINE HYDROCHLORIDE
     Indication: PANCREATIC NEOPLASM
     Dosage: STRENGTH: 1G?FORMULATION: POWDER FOR SOLUTION FOR INFUSION
     Route: 042
     Dates: start: 20171012, end: 20171207

REACTIONS (4)
  - Medication error [Unknown]
  - Thrombocytopenia [Recovering/Resolving]
  - Leukopenia [Recovering/Resolving]
  - Neutropenia [Unknown]

NARRATIVE: CASE EVENT DATE: 20171109
